FAERS Safety Report 18538628 (Version 1)
Quarter: 2020Q4

REPORT INFORMATION
  Report Type: Spontaneous
  Country: CN (occurrence: CN)
  Receive Date: 20201123
  Receipt Date: 20201123
  Transmission Date: 20210114
  Serious: Yes (Other)
  Sender: FDA-Public Use
  Company Number: CN-BAXTER-2020BAX023431

PATIENT
  Sex: Male

DRUGS (1)
  1. PERITONEAL DIALYSIS SOLUTION (LACTATE- G2.5%) [Suspect]
     Active Substance: CALCIUM CHLORIDE\DEXTROSE\MAGNESIUM CHLORIDE\SODIUM CHLORIDE\SODIUM LACTATE
     Indication: RENAL FAILURE
     Dosage: 4 BAGS OR 5 BAGS PER DAY
     Route: 033

REACTIONS (2)
  - Congenital cystic kidney disease [Not Recovered/Not Resolved]
  - Thyroid hormones increased [Not Recovered/Not Resolved]
